FAERS Safety Report 6745852-5 (Version None)
Quarter: 2010Q2

REPORT INFORMATION
  Report Type: 
  Country: None (occurrence: None)
  Receive Date: 20100528
  Receipt Date: 20100528
  Transmission Date: 20101027
  Serious: No
  Sender: FDA-Public Use
  Company Number: None

PATIENT

DRUGS (2)
  1. TYLENOL [Suspect]
  2. MOTRYL [Suspect]

REACTIONS (5)
  - ABDOMINAL PAIN UPPER [None]
  - ASTHMA [None]
  - HEADACHE [None]
  - PRODUCT QUALITY ISSUE [None]
  - VOMITING [None]
